FAERS Safety Report 23239759 (Version 1)
Quarter: 2023Q4

REPORT INFORMATION
  Report Type: Spontaneous
  Country: US (occurrence: US)
  Receive Date: 20231129
  Receipt Date: 20231129
  Transmission Date: 20240110
  Serious: No
  Sender: FDA-Public Use
  Company Number: US-ABBVIE-5518166

PATIENT
  Sex: Male

DRUGS (1)
  1. HUMIRA [Suspect]
     Active Substance: ADALIMUMAB
     Indication: Product used for unknown indication
     Route: 058

REACTIONS (6)
  - Aspartate aminotransferase increased [Unknown]
  - Depression [Unknown]
  - Headache [Unknown]
  - Lethargy [Unknown]
  - Anxiety [Unknown]
  - Alanine aminotransferase increased [Unknown]
